FAERS Safety Report 5877912-5 (Version None)
Quarter: 2008Q3

REPORT INFORMATION
  Report Type: 
  Country: None (occurrence: None)
  Receive Date: 20080911
  Receipt Date: 20080904
  Transmission Date: 20090109
  Serious: Yes (Other)
  Sender: FDA-Public Use
  Company Number: A0746662A

PATIENT
  Age: 59 Year
  Sex: Male
  Weight: 71.8 kg

DRUGS (4)
  1. AVANDIA [Suspect]
     Dosage: 4MG PER DAY
     Route: 048
     Dates: start: 20010101, end: 20070101
  2. AVANDARYL [Suspect]
     Route: 048
     Dates: start: 20070101, end: 20080101
  3. GLUCOPHAGE [Concomitant]
     Dates: start: 20070101
  4. METFORMIN HCL [Concomitant]
     Dates: start: 20070101

REACTIONS (4)
  - CEREBROVASCULAR ACCIDENT [None]
  - CHEST PAIN [None]
  - CORONARY ARTERY DISEASE [None]
  - MYOCARDIAL INFARCTION [None]
